FAERS Safety Report 22604812 (Version 8)
Quarter: 2023Q4

REPORT INFORMATION
  Report Type: Report from Study
  Country: CN (occurrence: CN)
  Receive Date: 20230615
  Receipt Date: 20231206
  Transmission Date: 20240109
  Serious: Yes (Other)
  Sender: FDA-Public Use
  Company Number: CN-PFIZER INC-PV202300101880

PATIENT
  Age: 48 Year
  Sex: Female
  Weight: 91.5 kg

DRUGS (51)
  1. ENCORAFENIB [Suspect]
     Active Substance: ENCORAFENIB
     Indication: Colorectal cancer metastatic
     Dosage: 300 MG, 1X/DAY
     Route: 048
     Dates: start: 20230104, end: 20230607
  2. ERBITUX [Suspect]
     Active Substance: CETUXIMAB
     Indication: Colorectal cancer metastatic
     Dosage: 1060 MG ST
     Route: 041
     Dates: start: 20230104, end: 20230104
  3. ERBITUX [Suspect]
     Active Substance: CETUXIMAB
     Dosage: 1055 MG ST
     Route: 041
     Dates: start: 20230118, end: 20230118
  4. ERBITUX [Suspect]
     Active Substance: CETUXIMAB
     Dosage: 1030 MG ST
     Route: 041
     Dates: start: 20230201, end: 20230201
  5. ERBITUX [Suspect]
     Active Substance: CETUXIMAB
     Dosage: 1035 MG ST
     Route: 041
     Dates: start: 20230215, end: 20230215
  6. ERBITUX [Suspect]
     Active Substance: CETUXIMAB
     Dosage: 1035 MG ST
     Route: 041
     Dates: start: 20230301, end: 20230301
  7. ERBITUX [Suspect]
     Active Substance: CETUXIMAB
     Dosage: 1040 MG ST
     Route: 041
     Dates: start: 20230322, end: 20230322
  8. ERBITUX [Suspect]
     Active Substance: CETUXIMAB
     Dosage: 1040 MG ST
     Route: 041
     Dates: start: 20230411, end: 20230411
  9. ERBITUX [Suspect]
     Active Substance: CETUXIMAB
     Dosage: 1050 MG ST
     Route: 041
     Dates: start: 20230426, end: 20230426
  10. ERBITUX [Suspect]
     Active Substance: CETUXIMAB
     Dosage: 1040 MG ST
     Route: 041
     Dates: start: 20230510, end: 20230510
  11. ERBITUX [Suspect]
     Active Substance: CETUXIMAB
     Dosage: 1040 MG ST
     Route: 041
     Dates: start: 20230524, end: 20230524
  12. OXALIPLATIN [Suspect]
     Active Substance: OXALIPLATIN
     Indication: Colorectal cancer metastatic
     Dosage: 180.2 MG ST, AIHENG
     Route: 041
     Dates: start: 20230104, end: 20230104
  13. OXALIPLATIN [Suspect]
     Active Substance: OXALIPLATIN
     Dosage: 179.4 MG ST, AIHENG
     Route: 041
     Dates: start: 20230118, end: 20230118
  14. OXALIPLATIN [Suspect]
     Active Substance: OXALIPLATIN
     Dosage: 175 MG ST
     Route: 041
     Dates: start: 20230201, end: 20230201
  15. OXALIPLATIN [Suspect]
     Active Substance: OXALIPLATIN
     Dosage: 176.0 MG ST, AIHENG
     Route: 041
     Dates: start: 20230215, end: 20230215
  16. OXALIPLATIN [Suspect]
     Active Substance: OXALIPLATIN
     Dosage: 176.0 MG ST, AIHENG
     Route: 041
     Dates: start: 20230301, end: 20230301
  17. OXALIPLATIN [Suspect]
     Active Substance: OXALIPLATIN
     Dosage: 176.8 MG ST, AIHENG
     Route: 041
     Dates: start: 20230322, end: 20230322
  18. OXALIPLATIN [Suspect]
     Active Substance: OXALIPLATIN
     Dosage: 176.8 MG ST, AIHENG
     Route: 041
     Dates: start: 20230411, end: 20230411
  19. OXALIPLATIN [Suspect]
     Active Substance: OXALIPLATIN
     Dosage: 178.5 MG ST, AIHENG
     Route: 041
     Dates: start: 20230426, end: 20230426
  20. OXALIPLATIN [Suspect]
     Active Substance: OXALIPLATIN
     Dosage: 176.8 MG ST, AIHENG
     Route: 041
     Dates: start: 20230510, end: 20230510
  21. OXALIPLATIN [Suspect]
     Active Substance: OXALIPLATIN
     Dosage: 135.2 MG ST, AIHENG
     Route: 041
     Dates: start: 20230524, end: 20230524
  22. LEUCOVORIN CALCIUM [Suspect]
     Active Substance: LEUCOVORIN CALCIUM
     Indication: Colorectal cancer metastatic
     Dosage: 848 MG ST, DAFUTING
     Route: 041
     Dates: start: 20230104, end: 20230104
  23. LEUCOVORIN CALCIUM [Suspect]
     Active Substance: LEUCOVORIN CALCIUM
     Dosage: 844 MG ST, DAFUTING
     Route: 041
     Dates: start: 20230118, end: 20230118
  24. LEUCOVORIN CALCIUM [Suspect]
     Active Substance: LEUCOVORIN CALCIUM
     Dosage: 824 MG ST
     Route: 041
     Dates: start: 20230201, end: 20230201
  25. LEUCOVORIN CALCIUM [Suspect]
     Active Substance: LEUCOVORIN CALCIUM
     Dosage: 828 MG ST, DAFUTING
     Route: 041
     Dates: start: 20230215, end: 20230215
  26. LEUCOVORIN CALCIUM [Suspect]
     Active Substance: LEUCOVORIN CALCIUM
     Dosage: 828 MG ST, DAFUTING
     Route: 041
     Dates: start: 20230301, end: 20230301
  27. LEUCOVORIN CALCIUM [Suspect]
     Active Substance: LEUCOVORIN CALCIUM
     Dosage: 832 MG ST
     Route: 041
     Dates: start: 20230322, end: 20230322
  28. LEUCOVORIN CALCIUM [Suspect]
     Active Substance: LEUCOVORIN CALCIUM
     Dosage: 832 MG ST, DAFUTING
     Route: 041
     Dates: start: 20230411, end: 20230411
  29. LEUCOVORIN CALCIUM [Suspect]
     Active Substance: LEUCOVORIN CALCIUM
     Dosage: 840 MG ST, DAFUTING
     Route: 041
     Dates: start: 20230426, end: 20230426
  30. LEUCOVORIN CALCIUM [Suspect]
     Active Substance: LEUCOVORIN CALCIUM
     Dosage: 832 MG ST, DAFUTING
     Route: 041
     Dates: start: 20230510, end: 20230510
  31. LEUCOVORIN CALCIUM [Suspect]
     Active Substance: LEUCOVORIN CALCIUM
     Dosage: 832 MG ST, DAFUTING
     Route: 041
     Dates: start: 20230524, end: 20230524
  32. FLUOROURACIL [Suspect]
     Active Substance: FLUOROURACIL
     Indication: Colorectal cancer metastatic
     Dosage: 848 MG ST
     Route: 042
     Dates: start: 20230104, end: 20230104
  33. FLUOROURACIL [Suspect]
     Active Substance: FLUOROURACIL
     Dosage: 5088 MG ST
     Route: 041
     Dates: start: 20230104, end: 20230106
  34. FLUOROURACIL [Suspect]
     Active Substance: FLUOROURACIL
     Dosage: 844 MG ST
     Route: 042
     Dates: start: 20230118, end: 20230118
  35. FLUOROURACIL [Suspect]
     Active Substance: FLUOROURACIL
     Dosage: 5064 MG ST
     Route: 041
     Dates: start: 20230118, end: 20230120
  36. FLUOROURACIL [Suspect]
     Active Substance: FLUOROURACIL
     Dosage: 824 MG ST
     Route: 042
     Dates: start: 20230201, end: 20230201
  37. FLUOROURACIL [Suspect]
     Active Substance: FLUOROURACIL
     Dosage: 4944 MG ST
     Route: 041
     Dates: start: 20230201, end: 20230203
  38. FLUOROURACIL [Suspect]
     Active Substance: FLUOROURACIL
     Dosage: 828 MG ST
     Route: 042
     Dates: start: 20230215, end: 20230215
  39. FLUOROURACIL [Suspect]
     Active Substance: FLUOROURACIL
     Dosage: 4968 MG ST
     Route: 041
     Dates: start: 20230215, end: 20230217
  40. FLUOROURACIL [Suspect]
     Active Substance: FLUOROURACIL
     Dosage: 828 MG ST
     Route: 042
     Dates: start: 20230301, end: 20230301
  41. FLUOROURACIL [Suspect]
     Active Substance: FLUOROURACIL
     Dosage: 4968 MG ST
     Route: 041
     Dates: start: 20230301, end: 20230303
  42. FLUOROURACIL [Suspect]
     Active Substance: FLUOROURACIL
     Dosage: 4992 MG ST
     Route: 041
     Dates: start: 20230322, end: 20230324
  43. FLUOROURACIL [Suspect]
     Active Substance: FLUOROURACIL
     Dosage: 4992 MG ST
     Route: 041
     Dates: start: 20230411, end: 20230413
  44. FLUOROURACIL [Suspect]
     Active Substance: FLUOROURACIL
     Dosage: 5040 MG ST
     Route: 041
     Dates: start: 20230426, end: 20230426
  45. FLUOROURACIL [Suspect]
     Active Substance: FLUOROURACIL
     Dosage: 4992 MG ST
     Route: 041
     Dates: start: 20230510, end: 20230510
  46. FLUOROURACIL [Suspect]
     Active Substance: FLUOROURACIL
     Dosage: 4992 MG ST
     Route: 041
     Dates: start: 20230524, end: 20230526
  47. XUAN NING [LEVAMLODIPINE MALEATE] [Concomitant]
     Indication: Hypertension
     Dosage: 2.5 MG, 1X/DAY
     Route: 048
     Dates: start: 202004
  48. OU SAI [Concomitant]
     Indication: Vomiting
     Dosage: 0.25 MG ST
     Route: 041
     Dates: start: 20230524, end: 20230524
  49. PHENERGAN [Concomitant]
     Active Substance: PROMETHAZINE HYDROCHLORIDE
     Indication: Prophylaxis
     Dosage: 25 MG ST
     Route: 041
     Dates: start: 20230524, end: 20230524
  50. DEXAMETHASONE SODIUM PHOSPHATE [Concomitant]
     Active Substance: DEXAMETHASONE PHOSPHATE\DEXAMETHASONE SODIUM PHOSPHATE
     Indication: Prophylaxis
     Dosage: 10 MG ST, CHENXIN
     Dates: start: 20230524, end: 20230524
  51. CIMETIDINE [Concomitant]
     Active Substance: CIMETIDINE
     Indication: Prophylaxis
     Dosage: 0.3 G ST
     Route: 041
     Dates: start: 20230524, end: 20230524

REACTIONS (1)
  - Retinal detachment [Recovered/Resolved]

NARRATIVE: CASE EVENT DATE: 20230605
